FAERS Safety Report 9200930 (Version 1)
Quarter: 2013Q2

REPORT INFORMATION
  Report Type: Spontaneous
  Country: US (occurrence: US)
  Receive Date: 20130401
  Receipt Date: 20130401
  Transmission Date: 20140414
  Serious: Yes (Other)
  Sender: FDA-Public Use
  Company Number: US-JNJFOC-20130315930

PATIENT
  Age: 74 Year
  Sex: Female
  Weight: 68.04 kg

DRUGS (9)
  1. IMODIUM A-D [Suspect]
     Route: 048
  2. IMODIUM A-D [Suspect]
     Indication: ANTIDIARRHOEAL SUPPORTIVE CARE
     Dosage: ANY TIME WITH LOOSE STOOL
     Route: 048
     Dates: start: 20130313, end: 20130319
  3. IMODIUM [Suspect]
     Route: 048
  4. IMODIUM [Suspect]
     Indication: ANTIDIARRHOEAL SUPPORTIVE CARE
     Dosage: ANY TIME WITH LOOSE STOOL
     Route: 048
     Dates: start: 20130320, end: 20130321
  5. WARFARIN [Suspect]
     Indication: ANTICOAGULANT THERAPY
     Dosage: TAKING FOR 7 YEARS
     Route: 065
     Dates: start: 2006
  6. METOPROLOL [Concomitant]
     Indication: CARDIAC DISORDER
     Dosage: TAKING FOR 18 YEARS
     Route: 065
     Dates: start: 1995
  7. SOTALOL [Concomitant]
     Indication: CARDIAC DISORDER
     Dosage: TAKING FOR 18 YEARS
     Route: 065
     Dates: start: 1995
  8. ZETIA [Concomitant]
     Indication: BLOOD CHOLESTEROL
     Dosage: TAKING FOR 3 YEARS
     Route: 065
     Dates: start: 2010
  9. LIPITOR [Concomitant]
     Indication: BLOOD CHOLESTEROL
     Route: 065
     Dates: start: 2000

REACTIONS (2)
  - International normalised ratio increased [Unknown]
  - Wrong technique in drug usage process [Unknown]
